FAERS Safety Report 17106498 (Version 1)
Quarter: 2019Q4

REPORT INFORMATION
  Report Type: Spontaneous
  Country: US (occurrence: US)
  Receive Date: 20191203
  Receipt Date: 20191203
  Transmission Date: 20200122
  Serious: No
  Sender: FDA-Public Use
  Company Number: US-GLAXOSMITHKLINE-US2019214998

PATIENT
  Age: 72 Year
  Sex: Female

DRUGS (1)
  1. ABREVA [Suspect]
     Active Substance: DOCOSANOL
     Indication: ORAL HERPES
     Dosage: 1 DF
     Dates: start: 20191123, end: 20191123

REACTIONS (5)
  - Hypersensitivity [Unknown]
  - Application site erythema [Recovered/Resolved]
  - Pain [Unknown]
  - Application site pruritus [Recovered/Resolved]
  - Application site swelling [Recovered/Resolved]

NARRATIVE: CASE EVENT DATE: 20191123
